FAERS Safety Report 8617796-5 (Version None)
Quarter: 2012Q3

REPORT INFORMATION
  Report Type: 
  Country: None (occurrence: None)
  Receive Date: 20120824
  Receipt Date: 20120316
  Transmission Date: 20120928
  Serious: No
  Sender: FDA-Public Use
  Company Number: US-ASTRAZENECA-2012SE11687

PATIENT
  Age: 55 Year
  Sex: Male
  Weight: 106.1 kg

DRUGS (5)
  1. BYSTOLIC [Concomitant]
  2. SIMVASTATIN [Concomitant]
  3. LISINOPRIL AND HYDROCHLOROTHIAZIDE [Suspect]
     Route: 048
  4. METFORMIN HCL [Concomitant]
  5. SYMBICORT [Suspect]
     Indication: OESOPHAGEAL OEDEMA
     Dosage: 160/4.5 MCG, 2 PUFFS AS REQUIRED
     Route: 055

REACTIONS (4)
  - WEIGHT DECREASED [None]
  - OFF LABEL USE [None]
  - DRUG DOSE OMISSION [None]
  - COUGH [None]
